FAERS Safety Report 6639396-9 (Version None)
Quarter: 2010Q1

REPORT INFORMATION
  Report Type: 
  Country: None (occurrence: None)
  Receive Date: 20100318
  Receipt Date: 20100312
  Transmission Date: 20100710
  Serious: Yes (Hospitalization)
  Sender: FDA-Public Use
  Company Number: US-BIOGENIDEC-2010BI006560

PATIENT
  Sex: Female
  Weight: 70 kg

DRUGS (2)
  1. AVONEX [Suspect]
     Indication: MULTIPLE SCLEROSIS
     Route: 030
  2. SOLU-MEDROL [Concomitant]
     Route: 042

REACTIONS (9)
  - ASTHENIA [None]
  - CONTUSION [None]
  - DEPRESSION [None]
  - DYSARTHRIA [None]
  - FALL [None]
  - MOBILITY DECREASED [None]
  - PAIN [None]
  - PERONEAL NERVE PALSY [None]
  - WEIGHT INCREASED [None]
